FAERS Safety Report 10515589 (Version 1)
Quarter: 2014Q4

REPORT INFORMATION
  Report Type: Spontaneous
  Country: US (occurrence: US)
  Receive Date: 20141014
  Receipt Date: 20141014
  Transmission Date: 20150528
  Serious: No
  Sender: FDA-Public Use
  Company Number: US-BAYER-2014-151703

PATIENT
  Age: 87 Year
  Sex: Female
  Weight: 68.93 kg

DRUGS (2)
  1. ST. JOSEPH ASPIRIN [Concomitant]
  2. ALEVE [Suspect]
     Active Substance: NAPROXEN SODIUM
     Indication: ARTHRITIS
     Dosage: 3 DF, QD, 2 IN THE MORNING AND 1 FOUR HOURS LATER
     Route: 048
     Dates: start: 2012

REACTIONS (2)
  - Incorrect drug administration duration [Unknown]
  - Drug ineffective [Unknown]

NARRATIVE: CASE EVENT DATE: 2014
